FAERS Safety Report 22634174 (Version 1)
Quarter: 2023Q2

REPORT INFORMATION
  Report Type: Spontaneous
  Country: US (occurrence: None)
  Receive Date: 20230622
  Receipt Date: 20230622
  Transmission Date: 20230722
  Serious: No
  Sender: FDA-Public Use
  Company Number: None

PATIENT
  Sex: 0

DRUGS (2)
  1. TEGRETOL [Suspect]
     Active Substance: CARBAMAZEPINE
  2. LYRICA [Suspect]
     Active Substance: PREGABALIN

REACTIONS (4)
  - Multiple allergies [None]
  - Mental disorder [None]
  - Rash [None]
  - Urinary tract infection [None]
